FAERS Safety Report 7804953-0 (Version None)
Quarter: 2011Q4

REPORT INFORMATION
  Report Type: 
  Country: None (occurrence: None)
  Receive Date: 20111010
  Receipt Date: 20110926
  Transmission Date: 20120403
  Serious: Yes (Other)
  Sender: FDA-Public Use
  Company Number: PHHY2011BR86031

PATIENT
  Age: 65 Year
  Sex: Female

DRUGS (3)
  1. CLOPIDOGREL [Suspect]
     Dosage: 75 MG, DAILY
  2. DIOVAN HCT [Suspect]
     Dosage: 1 DF (160 MG VALS AND 12.5 MG HYDR)  DAILY
  3. ATENOLOL [Suspect]
     Dosage: 25 MG, DAILY

REACTIONS (4)
  - DIASTOLIC DYSFUNCTION [None]
  - POOR QUALITY SLEEP [None]
  - BLOOD PRESSURE INCREASED [None]
  - HYPERTENSION [None]
